FAERS Safety Report 24032472 (Version 1)
Quarter: 2024Q3

REPORT INFORMATION
  Report Type: Spontaneous
  Country: CA (occurrence: CA)
  Receive Date: 20240701
  Receipt Date: 20240701
  Transmission Date: 20241016
  Serious: Yes (Other)
  Sender: STRIDES
  Company Number: CA-STRIDES ARCOLAB LIMITED-2024SP007558

PATIENT
  Age: 44 Year
  Sex: Female

DRUGS (7)
  1. PREDNISOLONE [Suspect]
     Active Substance: PREDNISOLONE
     Indication: Occupational asthma
     Dosage: 20 MILLIGRAM
     Route: 065
  2. PREDNISOLONE [Suspect]
     Active Substance: PREDNISOLONE
     Dosage: 15 MILLIGRAM, QD, MAINTENANCE
     Route: 065
  3. BECLOMETHASONE [Concomitant]
     Active Substance: BECLOMETHASONE
     Indication: Occupational asthma
     Dosage: UNK,, INITIAL DOSE NOT STATED
     Route: 065
  4. BECLOMETHASONE [Concomitant]
     Active Substance: BECLOMETHASONE
     Dosage: UNK, BID
     Route: 065
  5. THEOPHYLLINE [Concomitant]
     Active Substance: THEOPHYLLINE
     Indication: Occupational asthma
     Dosage: UNK
     Route: 065
  6. FENOTEROL [Concomitant]
     Active Substance: FENOTEROL
     Indication: Occupational asthma
     Dosage: UNK,INITIAL DOSE NOT STATED
     Route: 065
  7. FENOTEROL [Concomitant]
     Active Substance: FENOTEROL
     Dosage: UNK, AS NEEDED
     Route: 065

REACTIONS (3)
  - Withdrawal syndrome [Unknown]
  - Arthralgia [Unknown]
  - Polymyalgia rheumatica [Unknown]
